FAERS Safety Report 25555608 (Version 1)
Quarter: 2025Q3

REPORT INFORMATION
  Report Type: Spontaneous
  Country: US (occurrence: US)
  Receive Date: 20250715
  Receipt Date: 20250715
  Transmission Date: 20251021
  Serious: No
  Sender: NOVO NORDISK
  Company Number: US-NOVOPROD-1245728

PATIENT
  Sex: Female

DRUGS (1)
  1. OZEMPIC [Suspect]
     Active Substance: SEMAGLUTIDE
     Indication: Weight control
     Route: 058
     Dates: start: 20230619, end: 20230703

REACTIONS (4)
  - Influenza like illness [Recovered/Resolved]
  - Suspected counterfeit product [Unknown]
  - Counterfeit product administered [Unknown]
  - Product use in unapproved indication [Unknown]
